FAERS Safety Report 13627338 (Version 3)
Quarter: 2017Q3

REPORT INFORMATION
  Report Type: Spontaneous
  Country: CN (occurrence: CN)
  Receive Date: 20170607
  Receipt Date: 20170720
  Transmission Date: 20171127
  Serious: Yes (Hospitalization)
  Sender: FDA-Public Use
  Company Number: CN-ABBVIE-17K-035-1999765-00

PATIENT
  Age: 48 Year
  Sex: Male

DRUGS (1)
  1. HUMIRA [Suspect]
     Active Substance: ADALIMUMAB
     Indication: ANKYLOSING SPONDYLITIS
     Route: 058
     Dates: start: 20160930, end: 201705

REACTIONS (4)
  - Drug hypersensitivity [Recovering/Resolving]
  - Swelling face [Recovered/Resolved]
  - Dermatitis allergic [Recovering/Resolving]
  - Eosinophil count decreased [Unknown]

NARRATIVE: CASE EVENT DATE: 201705
